FAERS Safety Report 11212711 (Version 5)
Quarter: 2016Q2

REPORT INFORMATION
  Report Type: Spontaneous
  Country: US (occurrence: US)
  Receive Date: 20150623
  Receipt Date: 20160614
  Transmission Date: 20160815
  Serious: Yes (Hospitalization, Disabling, Other)
  Sender: FDA-Public Use
  Company Number: US-009507513-1506USA010599

PATIENT
  Sex: Female

DRUGS (6)
  1. VITAMIN D [Concomitant]
     Active Substance: CHOLECALCIFEROL
     Indication: PRODUCT USED FOR UNKNOWN INDICATION
     Dosage: 1000 IU, UNKNOWN
     Route: 065
     Dates: start: 2000
  2. ALENDRONATE SODIUM. [Suspect]
     Active Substance: ALENDRONATE SODIUM
     Indication: UPPER LIMB FRACTURE
     Dosage: 70 MG, QW
     Route: 048
     Dates: start: 20080312, end: 2008
  3. FOSAMAX [Suspect]
     Active Substance: ALENDRONATE SODIUM
     Indication: UPPER LIMB FRACTURE
  4. FOSAMAX [Suspect]
     Active Substance: ALENDRONATE SODIUM
     Indication: BONE LOSS
     Dosage: 70 MG, QW
     Route: 048
     Dates: start: 200009, end: 20070706
  5. FOSAMAX PLUS D [Suspect]
     Active Substance: ALENDRONATE SODIUM\CHOLECALCIFEROL
     Indication: UPPER LIMB FRACTURE
     Dosage: 70MG/2,800 IU, QW
     Route: 048
     Dates: start: 20070625, end: 20080312
  6. CALTRATE WITH VITAMIN D [Concomitant]
     Active Substance: CALCIUM CARBONATE\CHOLECALCIFEROL
     Indication: PRODUCT USED FOR UNKNOWN INDICATION
     Dosage: 600 MG, UNK
     Route: 065
     Dates: start: 2000

REACTIONS (20)
  - Osteoporosis [Unknown]
  - Femur fracture [Recovered/Resolved]
  - Osteoporosis [Unknown]
  - Pain in extremity [Unknown]
  - Hip fracture [Recovering/Resolving]
  - Adverse event [Not Recovered/Not Resolved]
  - Hysterectomy [Unknown]
  - Fall [Unknown]
  - Haemorrhagic anaemia [Unknown]
  - Essential hypertension [Unknown]
  - Radius fracture [Unknown]
  - Fall [Unknown]
  - Stenosis [Unknown]
  - Femur fracture [Recovering/Resolving]
  - Anxiety [Unknown]
  - Osteopenia [Unknown]
  - Fear of falling [Unknown]
  - Blood cholesterol increased [Unknown]
  - Upper limb fracture [Unknown]
  - Off label use [Unknown]

NARRATIVE: CASE EVENT DATE: 200009
